FAERS Safety Report 5235922-5 (Version None)
Quarter: 2007Q1

REPORT INFORMATION
  Report Type: 
  Country: None (occurrence: None)
  Receive Date: 20061208
  Receipt Date: 20051205
  Transmission Date: 20070707
  Serious: Yes (Other)
  Sender: FDA-Public Use
  Company Number: 2005UW18321

PATIENT
  Age: 56 Year
  Sex: Female
  Weight: 81.646 kg

DRUGS (5)
  1. CRESTOR [Suspect]
     Indication: BLOOD CHOLESTEROL INCREASED
     Dosage: 5 MG QD PO
     Route: 048
     Dates: start: 20051202
  2. ZESTRIL [Concomitant]
  3. NEXIUM [Concomitant]
  4. POTASSIUM ACETATE [Concomitant]
  5. HYDROCHLOROTHIAZIDE [Concomitant]

REACTIONS (2)
  - DYSGEUSIA [None]
  - URINARY TRACT INFECTION [None]
